FAERS Safety Report 8919589 (Version 4)
Quarter: 2013Q3

REPORT INFORMATION
  Report Type: Spontaneous
  Country: JP (occurrence: JP)
  Receive Date: 20121121
  Receipt Date: 20130930
  Transmission Date: 20140515
  Serious: Yes (Life-Threatening)
  Sender: FDA-Public Use
  Company Number: JP-009507513-1211JPN007700

PATIENT
  Age: 75 Year
  Sex: Female
  Weight: 46 kg

DRUGS (5)
  1. BRIDION [Suspect]
     Indication: NEUROMUSCULAR BLOCKADE REVERSAL
     Dosage: 100 MG, QD
     Route: 042
     Dates: start: 20121114, end: 20121114
  2. IOPAMIRON [Suspect]
     Indication: CEREBROVASCULAR OPERATION
     Dosage: 136 ML, DOSAGE SCHEDULE UNKNWON
     Route: 065
     Dates: start: 20121114, end: 20121114
  3. ESLAX [Concomitant]
     Indication: NEUROMUSCULAR BLOCKING THERAPY
     Dosage: 10MG/HR, QD
     Route: 042
     Dates: start: 20121114, end: 20121114
  4. SEVOFLURANE [Concomitant]
     Indication: MAINTENANCE OF ANAESTHESIA
     Dosage: INHALATION
     Dates: start: 20121114, end: 20121114
  5. PROPOFOL [Concomitant]
     Indication: ANAESTHESIA PROCEDURE
     Dosage: UNK
     Dates: start: 20121114, end: 20121114

REACTIONS (2)
  - Tracheal stenosis [Recovered/Resolved]
  - Erythema [Recovered/Resolved]
